FAERS Safety Report 22071534 (Version 1)
Quarter: 2023Q1

REPORT INFORMATION
  Report Type: Spontaneous
  Country: US (occurrence: US)
  Receive Date: 20230307
  Receipt Date: 20230307
  Transmission Date: 20230418
  Serious: Yes (Other)
  Sender: FDA-Public Use
  Company Number: US-GILEAD-2023-0618632

PATIENT
  Age: 69 Year
  Sex: Male
  Weight: 74.9 kg

DRUGS (1)
  1. TECARTUS [Suspect]
     Active Substance: BREXUCABTAGENE AUTOLEUCEL
     Indication: Acute lymphocytic leukaemia
     Dosage: UNK
     Route: 042
     Dates: start: 20221010, end: 20221010

REACTIONS (13)
  - Hemiparesis [Unknown]
  - Hallucination, visual [Unknown]
  - Immune effector cell-associated neurotoxicity syndrome [Unknown]
  - Encephalopathy [Unknown]
  - Cytokine release syndrome [Unknown]
  - Fatigue [Unknown]
  - Tremor [Unknown]
  - Nausea [Unknown]
  - Headache [Unknown]
  - Muscular weakness [Unknown]
  - Somnolence [Unknown]
  - Confusional state [Unknown]
  - Confusional state [Unknown]

NARRATIVE: CASE EVENT DATE: 20221011
